FAERS Safety Report 12335194 (Version 3)
Quarter: 2016Q2

REPORT INFORMATION
  Report Type: Report from Study
  Country: US (occurrence: US)
  Receive Date: 20160504
  Receipt Date: 20160616
  Transmission Date: 20160815
  Serious: Yes (Life-Threatening, Hospitalization, Other)
  Sender: FDA-Public Use
  Company Number: US-ACTELION-A-US2016-135198

PATIENT
  Age: 65 Year
  Sex: Female

DRUGS (3)
  1. THEOPHYLLINE [Concomitant]
     Active Substance: THEOPHYLLINE ANHYDROUS
     Dosage: 200 MG, BID
     Dates: start: 20140210
  2. OPSUMIT [Suspect]
     Active Substance: MACITENTAN
     Indication: PULMONARY ARTERIAL HYPERTENSION
     Dosage: 10 MG, QD
     Route: 048
     Dates: start: 20160322, end: 20160401
  3. DULERA [Concomitant]
     Active Substance: FORMOTEROL FUMARATE DIHYDRATE\MOMETASONE FUROATE
     Dosage: 100-1 MCG, 2 PUFFS DAILY

REACTIONS (12)
  - Haemoglobin decreased [Recovered/Resolved]
  - Dyspnoea [Recovered/Resolved]
  - Anaemia [Recovered/Resolved]
  - Pulmonary pain [Recovered/Resolved]
  - Fear [Unknown]
  - Epistaxis [Recovered/Resolved]
  - Hypersensitivity [Recovered/Resolved]
  - Faeces discoloured [Unknown]
  - Transfusion [Recovered/Resolved]
  - Peripheral swelling [Recovering/Resolving]
  - Gastrointestinal haemorrhage [Unknown]
  - Pulmonary haemorrhage [Unknown]

NARRATIVE: CASE EVENT DATE: 20160329
